FAERS Safety Report 9568023 (Version 2)
Quarter: 2014Q1

REPORT INFORMATION
  Report Type: Spontaneous
  Country: US (occurrence: US)
  Receive Date: 20130930
  Receipt Date: 20140303
  Transmission Date: 20141002
  Serious: No
  Sender: FDA-Public Use
  Company Number: US-AMGEN-USASP2013056675

PATIENT
  Age: 47 Year
  Sex: Female

DRUGS (2)
  1. ENBREL [Suspect]
     Indication: RHEUMATOID ARTHRITIS
     Dosage: 50 MG, QWK
     Route: 065
     Dates: start: 20130111, end: 2013
  2. METHOTREXATE [Concomitant]
     Dosage: 2.5 MG, QWK (6 TAB)

REACTIONS (5)
  - Mobility decreased [Unknown]
  - Arthralgia [Unknown]
  - Oedema peripheral [Unknown]
  - Erythema [Unknown]
  - Joint swelling [Unknown]
